FAERS Safety Report 8241916-8 (Version None)
Quarter: 2012Q1

REPORT INFORMATION
  Report Type: 
  Country: None (occurrence: None)
  Receive Date: 20120329
  Receipt Date: 20120323
  Transmission Date: 20120608
  Serious: Yes (Hospitalization, Other)
  Sender: FDA-Public Use
  Company Number: DK-AMGEN-DNKSP2012019206

PATIENT
  Age: 65 Year
  Sex: Female
  Weight: 74 kg

DRUGS (30)
  1. CYCLOPHOSPHAMIDE [Suspect]
     Dosage: 1400 MG, UNK
     Route: 042
     Dates: start: 20120305
  2. DOXORUBICIN HCL [Suspect]
     Indication: MALIGNANT LYMPHOID NEOPLASM
     Dosage: 90 MG, UNK
     Route: 042
     Dates: start: 20120207
  3. DOXORUBICIN HCL [Suspect]
     Dosage: 90 MG, UNK
     Route: 042
     Dates: start: 20120305
  4. PREDNISONE TAB [Suspect]
     Indication: MALIGNANT LYMPHOID NEOPLASM
     Dosage: 500 MG, UNK
     Route: 048
     Dates: start: 20120207
  5. RITUXIMAB [Suspect]
     Indication: MALIGNANT LYMPHOID NEOPLASM
     Dosage: 693 MG, UNK
     Route: 042
     Dates: start: 20120207
  6. PREDNISONE TAB [Suspect]
     Dosage: 500 MG, UNK
     Route: 048
     Dates: start: 20120220
  7. CLEMASTINE FUMARATE [Concomitant]
     Dosage: 2 MG, UNK
     Route: 048
     Dates: start: 20120207, end: 20120207
  8. ACYCLOVIR [Concomitant]
     Indication: INFECTION
     Dosage: 400 MG, UNK
     Route: 048
     Dates: start: 20120207
  9. CLEMASTINE FUMARATE [Concomitant]
     Dosage: 2 MG, UNK
     Route: 048
     Dates: start: 20120213, end: 20120213
  10. CYCLOPHOSPHAMIDE [Suspect]
     Indication: MALIGNANT LYMPHOID NEOPLASM
     Dosage: 1400 MG, UNK
     Route: 042
     Dates: start: 20120207
  11. VINCRISTINE [Suspect]
     Indication: MALIGNANT LYMPHOID NEOPLASM
     Dosage: 2 MG, UNK
     Route: 042
     Dates: start: 20120207
  12. VINCRISTINE [Suspect]
     Dosage: 2 MG, UNK
     Route: 042
     Dates: start: 20120305
  13. ALLOPURINOL [Concomitant]
     Dosage: 300 MG, UNK
     Route: 048
     Dates: start: 20120207
  14. CLEMASTINE FUMARATE [Concomitant]
     Dosage: 2 MG, UNK
     Route: 048
     Dates: start: 20120220, end: 20120220
  15. ACETAMINOPHEN [Concomitant]
     Dosage: 1000 MG, UNK
     Route: 048
     Dates: start: 20120227, end: 20120227
  16. RITUXIMAB [Suspect]
     Dosage: 693 MG, UNK
     Route: 042
     Dates: start: 20120305
  17. LANSOPRAZOLE [Concomitant]
     Dosage: 30 MG, UNK
     Route: 048
     Dates: start: 20120113, end: 20120305
  18. CLEMASTINE FUMARATE [Concomitant]
     Dosage: 2 MG, UNK
     Route: 048
     Dates: start: 20120227, end: 20120227
  19. PEGFILGRASTIM [Suspect]
     Indication: MALIGNANT LYMPHOID NEOPLASM
     Dosage: 6 MG, UNK
     Route: 058
     Dates: start: 20120210, end: 20120210
  20. PREDNISONE TAB [Suspect]
     Dosage: 100 MG, UNK
     Route: 048
     Dates: start: 20120227, end: 20120227
  21. PAMOL [Concomitant]
     Indication: PAIN
     Dosage: 1000 MG, UNK
     Route: 048
     Dates: start: 20120207, end: 20120207
  22. BACTRIM [Concomitant]
     Indication: INFECTION
     Dosage: UNK
     Route: 048
     Dates: start: 20120207
  23. ONDANSETRON [Concomitant]
     Indication: NAUSEA
     Dosage: 8 MG, UNK
     Route: 048
     Dates: start: 20120207, end: 20120208
  24. ACETAMINOPHEN [Concomitant]
     Dosage: 1000 MG, UNK
     Route: 048
     Dates: start: 20120220, end: 20120220
  25. PEGFILGRASTIM [Suspect]
     Dosage: 6 MG, UNK
     Route: 058
     Dates: start: 20120223
  26. RITUXIMAB [Suspect]
     Dosage: 693 MG, UNK
     Route: 042
     Dates: start: 20120213
  27. PREDNISONE TAB [Suspect]
     Dosage: 500 MG, UNK
     Route: 048
     Dates: start: 20120309
  28. SULFAMETIZOL [Concomitant]
     Indication: INFECTION
     Dosage: UNK
     Dates: start: 20120207
  29. ACYCLOVIR [Concomitant]
     Indication: INFECTION
     Dosage: 800 MG, UNK
     Route: 048
     Dates: start: 20120207
  30. ACETAMINOPHEN [Concomitant]
     Indication: PAIN
     Dosage: 1000 MG, UNK
     Route: 048
     Dates: start: 20120213, end: 20120213

REACTIONS (5)
  - NECK PAIN [None]
  - ARTHRALGIA [None]
  - PULMONARY EMBOLISM [None]
  - BACK PAIN [None]
  - DYSPNOEA [None]
